FAERS Safety Report 13060312 (Version 1)
Quarter: 2016Q4

REPORT INFORMATION
  Report Type: Spontaneous
  Country: FR (occurrence: FR)
  Receive Date: 20161223
  Receipt Date: 20161223
  Transmission Date: 20170207
  Serious: Yes (Hospitalization)
  Sender: FDA-Public Use
  Company Number: FR-ASTRAZENECA-2016SF34416

PATIENT
  Age: 28148 Day
  Sex: Female

DRUGS (6)
  1. MERONEM [Suspect]
     Active Substance: MEROPENEM
     Indication: FEBRILE NEUTROPENIA
     Route: 042
     Dates: start: 20161104
  2. LEVOTHYROX [Concomitant]
     Active Substance: LEVOTHYROXINE
  3. METFORMINE [Concomitant]
     Active Substance: METFORMIN HYDROCHLORIDE
  4. MERONEM [Suspect]
     Active Substance: MEROPENEM
     Indication: FEBRILE NEUTROPENIA
     Route: 042
     Dates: start: 20161113, end: 20161121
  5. COZAAR [Concomitant]
     Active Substance: LOSARTAN POTASSIUM
  6. NOXAFIL [Suspect]
     Active Substance: POSACONAZOLE
     Route: 048
     Dates: start: 20161013, end: 20161115

REACTIONS (2)
  - Cholestasis [Recovering/Resolving]
  - Hepatic encephalopathy [Recovered/Resolved]

NARRATIVE: CASE EVENT DATE: 20161108
